FAERS Safety Report 7235258-7 (Version None)
Quarter: 2011Q1

REPORT INFORMATION
  Report Type: 
  Country: None (occurrence: None)
  Receive Date: 20110110
  Receipt Date: 20101229
  Transmission Date: 20110831
  Serious: Yes (Death, Hospitalization)
  Sender: FDA-Public Use
  Company Number: 2010SP001418

PATIENT
  Age: 62 Year
  Sex: Male
  Weight: 62 kg

DRUGS (9)
  1. SIMVASTATIN [Concomitant]
  2. WELLBUTRIN [Concomitant]
  3. SPIRIVA [Concomitant]
  4. METOPROLOL TARTRATE [Concomitant]
  5. OMEPRAZOLE [Concomitant]
  6. ARFORMOTEROL TARTRATE [Suspect]
     Indication: CHRONIC OBSTRUCTIVE PULMONARY DISEASE
     Dosage: 15 UG; BID; INHALATION
     Route: 055
     Dates: start: 20100126, end: 20100510
  7. QVAR 40 [Concomitant]
  8. SYNTHROID [Concomitant]
  9. ALBUTEROL [Concomitant]

REACTIONS (9)
  - OESOPHAGEAL SQUAMOUS CELL CARCINOMA METASTATIC [None]
  - LUNG NEOPLASM [None]
  - PNEUMONIA ASPIRATION [None]
  - CEREBRAL ISCHAEMIA [None]
  - RADIATION OESOPHAGITIS [None]
  - EMPHYSEMA [None]
  - CHRONIC OBSTRUCTIVE PULMONARY DISEASE [None]
  - CONDITION AGGRAVATED [None]
  - GASTRIC VARICES [None]
